FAERS Safety Report 7407653-4 (Version None)
Quarter: 2011Q2

REPORT INFORMATION
  Report Type: 
  Country: None (occurrence: None)
  Receive Date: 20110405
  Receipt Date: 20110321
  Transmission Date: 20111010
  Serious: Yes (Other)
  Sender: FDA-Public Use
  Company Number: 2011MA002672

PATIENT
  Age: 58 Year
  Sex: Female

DRUGS (2)
  1. BEVACIZUMAB [Concomitant]
  2. PACLITAXEL [Suspect]
     Indication: BREAST CANCER
     Dates: start: 20070801

REACTIONS (3)
  - VISUAL ACUITY REDUCED [None]
  - LACRIMATION INCREASED [None]
  - CYSTOID MACULAR OEDEMA [None]
